FAERS Safety Report 25006412 (Version 4)
Quarter: 2025Q1

REPORT INFORMATION
  Report Type: Report from Study
  Country: BR (occurrence: BR)
  Receive Date: 20250224
  Receipt Date: 20250325
  Transmission Date: 20250409
  Serious: Yes (Hospitalization, Other)
  Sender: JOHNSON AND JOHNSON
  Company Number: BR-JNJFOC-20240970933

PATIENT
  Age: 70 Year
  Sex: Female
  Weight: 74 kg

DRUGS (2)
  1. TALVEY [Suspect]
     Active Substance: TALQUETAMAB-TGVS
     Indication: Plasma cell myeloma
     Dosage: 0.4.?LAST APPLICATION WAS PERFORMED ON 13-NOV-2024.
     Route: 058
     Dates: start: 20240807, end: 20250221
  2. TALVEY [Suspect]
     Active Substance: TALQUETAMAB-TGVS
     Route: 058
     Dates: start: 20241030

REACTIONS (27)
  - Decreased immune responsiveness [Unknown]
  - Confusional state [Unknown]
  - Plasma cell myeloma [Unknown]
  - Drug ineffective [Unknown]
  - Dry skin [Recovering/Resolving]
  - Dry mouth [Recovered/Resolved]
  - Asthma [Unknown]
  - Ageusia [Recovering/Resolving]
  - Nail disorder [Recovering/Resolving]
  - Pruritus [Recovering/Resolving]
  - Platelet count decreased [Unknown]
  - Asthenia [Unknown]
  - Mucosal dryness [Recovering/Resolving]
  - Skin haemorrhage [Recovering/Resolving]
  - Skin exfoliation [Recovering/Resolving]
  - Dry throat [Recovering/Resolving]
  - Dysphagia [Recovering/Resolving]
  - Multiple allergies [Unknown]
  - Somnolence [Unknown]
  - Onycholysis [Recovering/Resolving]
  - Off label use [Unknown]
  - Inappropriate schedule of product administration [Unknown]
  - Product dose omission issue [Unknown]
  - Salivary hyposecretion [Unknown]
  - Insomnia [Unknown]
  - Blood pressure fluctuation [Recovering/Resolving]
  - Headache [Recovering/Resolving]

NARRATIVE: CASE EVENT DATE: 20240801
